FAERS Safety Report 25732072 (Version 1)
Quarter: 2025Q3

REPORT INFORMATION
  Report Type: Spontaneous
  Country: CN (occurrence: CN)
  Receive Date: 20250827
  Receipt Date: 20250827
  Transmission Date: 20251021
  Serious: Yes (Other)
  Sender: ROCHE
  Company Number: CN-BoehringerIngelheim-2025-BI-090808

PATIENT
  Age: 86 Year
  Sex: Male
  Weight: 78.0 kg

DRUGS (2)
  1. ALTEPLASE [Suspect]
     Active Substance: ALTEPLASE
     Indication: Cerebral infarction
     Dosage: ST VIA INTRAVENOUS INJECTION
     Route: 042
     Dates: start: 20250816, end: 20250816
  2. ALTEPLASE [Suspect]
     Active Substance: ALTEPLASE
     Dosage: IN 64ML/H VIA INTRAVENOUS PUMP WITHIN 1 H
     Route: 042
     Dates: start: 20250816, end: 20250816

REACTIONS (1)
  - Blood fibrinogen decreased [Recovered/Resolved]

NARRATIVE: CASE EVENT DATE: 20250817
